FAERS Safety Report 18606848 (Version 1)
Quarter: 2020Q4

REPORT INFORMATION
  Report Type: Spontaneous
  Country: US (occurrence: US)
  Receive Date: 20201211
  Receipt Date: 20201211
  Transmission Date: 20210114
  Serious: No
  Sender: FDA-Public Use
  Company Number: US-LUPIN PHARMACEUTICALS INC.-2020-08042

PATIENT
  Age: 64 Year
  Sex: Female
  Weight: 85.71 kg

DRUGS (1)
  1. ALBUTEROL SULFATE INHALATION AEROSOL, 90 MCG/ACTUATION [Suspect]
     Active Substance: ALBUTEROL SULFATE
     Indication: PRODUCT USED FOR UNKNOWN INDICATION
     Dosage: UNK UNK, PRN (2 PUFFS Q 4 HOURS AS NEEDED)
     Dates: start: 20201012, end: 202010

REACTIONS (4)
  - Drug dose omission by device [Unknown]
  - Dyspnoea [Not Recovered/Not Resolved]
  - Device defective [Unknown]
  - Device malfunction [Unknown]

NARRATIVE: CASE EVENT DATE: 20201012
